FAERS Safety Report 6356289-5 (Version None)
Quarter: 2009Q3

REPORT INFORMATION
  Report Type: 
  Country: None (occurrence: None)
  Receive Date: 20090915
  Receipt Date: 20090909
  Transmission Date: 20100115
  Serious: Yes (Life-Threatening, Hospitalization, Other)
  Sender: FDA-Public Use
  Company Number: US-ROXANE LABORATORIES, INC.-2009-RO-00924RO

PATIENT
  Age: 54 Year
  Sex: Male

DRUGS (6)
  1. PREDNISONE [Suspect]
     Indication: AUTOIMMUNE HEPATITIS
  2. PREDNISONE [Suspect]
  3. AZATHIOPRINE [Suspect]
     Indication: IMMUNOSUPPRESSANT DRUG THERAPY
  4. RIBAVIRIN [Suspect]
     Indication: HEPATITIS C VIRUS TEST
  5. INTERFERON ALFA-2B [Suspect]
     Indication: HEPATITIS C VIRUS TEST
  6. PEGYLATED INTERFERON [Suspect]
     Indication: HEPATITIS C VIRUS TEST

REACTIONS (5)
  - AUTOIMMUNE HEPATITIS [None]
  - CD4 LYMPHOCYTES DECREASED [None]
  - HEPATITIS C RNA INCREASED [None]
  - LUNG INFECTION PSEUDOMONAL [None]
  - RESPIRATORY FAILURE [None]
